FAERS Safety Report 15371827 (Version 1)
Quarter: 2018Q3

REPORT INFORMATION
  Report Type: Spontaneous
  Country: DE (occurrence: DE)
  Receive Date: 20180911
  Receipt Date: 20180911
  Transmission Date: 20181010
  Serious: Yes (Other)
  Sender: FDA-Public Use
  Company Number: DE-MYLANLABS-2018M1066088

PATIENT
  Age: 28 Year
  Sex: Female

DRUGS (17)
  1. LAMOTRIGINE. [Suspect]
     Active Substance: LAMOTRIGINE
     Dosage: 450 MG, UNK
  2. LEVETIRACETAM. [Suspect]
     Active Substance: LEVETIRACETAM
     Indication: SEIZURE
     Dosage: 3000 MG, UNK
  3. LAMOTRIGINE. [Suspect]
     Active Substance: LAMOTRIGINE
     Indication: SEIZURE
     Dosage: 50 MG, QD
  4. LEVETIRACETAM. [Suspect]
     Active Substance: LEVETIRACETAM
     Dosage: 1000 MG, QD
  5. BRIVARACETAM [Suspect]
     Active Substance: BRIVARACETAM
     Indication: SEIZURE
     Dosage: 50 MG, QD
  6. LEVETIRACETAM. [Suspect]
     Active Substance: LEVETIRACETAM
     Dosage: 1000 MG, UNK
     Route: 042
  7. LORAZEPAM. [Suspect]
     Active Substance: LORAZEPAM
     Dosage: 1 MG, UNK
  8. LEVETIRACETAM. [Suspect]
     Active Substance: LEVETIRACETAM
     Dosage: 1000 MG, UNK
     Route: 042
  9. LACOSAMIDE. [Suspect]
     Active Substance: LACOSAMIDE
     Indication: SEIZURE
     Dosage: 200 MG, UNK
  10. LORAZEPAM. [Suspect]
     Active Substance: LORAZEPAM
     Indication: SEIZURE
     Dosage: 1 MG, UNK
  11. LORAZEPAM. [Suspect]
     Active Substance: LORAZEPAM
     Dosage: 1 MG, UNK
  12. MIDAZOLAM [Suspect]
     Active Substance: MIDAZOLAM HYDROCHLORIDE
     Indication: SEIZURE
     Dosage: 5 MG, UNK
  13. LORAZEPAM. [Suspect]
     Active Substance: LORAZEPAM
     Dosage: 1 MG, UNK
     Route: 042
  14. BRIVARACETAM [Suspect]
     Active Substance: BRIVARACETAM
     Dosage: 200 MG, UNK
  15. LAMOTRIGINE. [Suspect]
     Active Substance: LAMOTRIGINE
     Dosage: 400 MG, QD
  16. LACOSAMIDE. [Suspect]
     Active Substance: LACOSAMIDE
     Dosage: 200 MG, UNK
  17. MIDAZOLAM [Suspect]
     Active Substance: MIDAZOLAM HYDROCHLORIDE
     Dosage: 5 MG, UNK

REACTIONS (2)
  - Treatment failure [Unknown]
  - Seizure [Unknown]
